FAERS Safety Report 25231531 (Version 1)
Quarter: 2025Q2

REPORT INFORMATION
  Report Type: Spontaneous
  Country: DE (occurrence: DE)
  Receive Date: 20250423
  Receipt Date: 20250423
  Transmission Date: 20250716
  Serious: Yes (Hospitalization)
  Sender: ALEXION PHARMACEUTICALS
  Company Number: DE-SANOFI-02490370

PATIENT
  Age: 3 Month

DRUGS (1)
  1. NIRSEVIMAB [Suspect]
     Active Substance: NIRSEVIMAB
     Indication: Respiratory syncytial virus immunisation
     Route: 065

REACTIONS (2)
  - Respiratory syncytial virus bronchitis [Not Recovered/Not Resolved]
  - Drug ineffective [Unknown]
